FAERS Safety Report 8819439 (Version 1)
Quarter: 2012Q4

REPORT INFORMATION
  Report Type: 
  Country: GB (occurrence: GB)
  Receive Date: 20121001
  Receipt Date: 20121001
  Transmission Date: 20130627
  Serious: Yes (Other)
  Sender: FDA-Public Use
  Company Number: GB-GE HEALTHCARE MEDICAL DIAGNOSTICS-VISP-NO-1209S-0402

PATIENT
  Age: 53 Year
  Sex: Male

DRUGS (1)
  1. VISIPAQUE [Suspect]
     Indication: PRODUCT USED FOR UNKNOWN INDICATION
     Dosage: dose not reported
     Route: 042
     Dates: start: 20120919, end: 20120919

REACTIONS (12)
  - Chest discomfort [Recovered/Resolved]
  - Dizziness [Recovered/Resolved]
  - Cold sweat [Recovered/Resolved]
  - Hyperhidrosis [Recovered/Resolved]
  - Fear of death [Recovered/Resolved]
  - Unresponsive to stimuli [Recovered/Resolved]
  - Back pain [Recovered/Resolved]
  - Feeling hot [Recovered/Resolved]
  - Dyspnoea [Recovered/Resolved]
  - Abdominal pain upper [Recovered/Resolved]
  - Nausea [Recovered/Resolved]
  - Malaise [Recovered/Resolved]
